FAERS Safety Report 14206146 (Version 1)
Quarter: 2017Q4

REPORT INFORMATION
  Report Type: Spontaneous
  Country: FR (occurrence: FR)
  Receive Date: 20171120
  Receipt Date: 20171120
  Transmission Date: 20180321
  Serious: Yes (Death, Hospitalization)
  Sender: FDA-Public Use
  Company Number: FR-CELGENEUS-FRA-20171104380

PATIENT
  Age: 78 Year
  Sex: Male
  Weight: 56 kg

DRUGS (6)
  1. MABTHERA [Suspect]
     Active Substance: RITUXIMAB
     Indication: DIFFUSE LARGE B-CELL LYMPHOMA
     Route: 065
     Dates: start: 201302, end: 201304
  2. MABTHERA [Suspect]
     Active Substance: RITUXIMAB
     Route: 041
     Dates: start: 20131011
  3. MABTHERA [Suspect]
     Active Substance: RITUXIMAB
     Route: 065
     Dates: start: 20130702, end: 20130912
  4. REVLIMID [Suspect]
     Active Substance: LENALIDOMIDE
     Indication: DISEASE PROGRESSION
  5. MABTHERA [Suspect]
     Active Substance: RITUXIMAB
     Indication: NEOPLASM PROGRESSION
     Route: 065
     Dates: start: 2012, end: 2012
  6. REVLIMID [Suspect]
     Active Substance: LENALIDOMIDE
     Indication: PLASMA CELL MYELOMA
     Dosage: 10 MILLIGRAM
     Route: 048
     Dates: start: 20131011

REACTIONS (4)
  - Alveolitis allergic [Fatal]
  - Neutropenia [Recovered/Resolved]
  - Febrile bone marrow aplasia [Recovered/Resolved]
  - Bronchitis [Recovered/Resolved]

NARRATIVE: CASE EVENT DATE: 201310
